FAERS Safety Report 21464821 (Version 2)
Quarter: 2023Q1

REPORT INFORMATION
  Report Type: Spontaneous
  Country: US (occurrence: US)
  Receive Date: 20221017
  Receipt Date: 20230131
  Transmission Date: 20230418
  Serious: No
  Sender: FDA-Public Use
  Company Number: US-BRISTOL-MYERS SQUIBB COMPANY-2022-121494

PATIENT
  Age: 83 Year
  Sex: Female

DRUGS (1)
  1. REVLIMID [Suspect]
     Active Substance: LENALIDOMIDE
     Indication: Plasma cell myeloma
     Dosage: ONCE DAILY FOR 21 DAYS, THEN 7 DAYS OFF (28 DAY CYCLE).
     Route: 048
     Dates: start: 20220216

REACTIONS (4)
  - Eye infection [Recovered/Resolved]
  - Ocular hyperaemia [Recovered/Resolved]
  - Dental discomfort [Recovered/Resolved]
  - Dry eye [Recovered/Resolved]
